FAERS Safety Report 19177452 (Version 1)
Quarter: 2021Q2

REPORT INFORMATION
  Report Type: Spontaneous
  Country: US (occurrence: US)
  Receive Date: 20210423
  Receipt Date: 20210423
  Transmission Date: 20210717
  Serious: Yes (Hospitalization)
  Sender: FDA-Public Use
  Company Number: None

PATIENT
  Age: 74 Year
  Sex: Female

DRUGS (1)
  1. BAMLANIVIMAB. [Suspect]
     Active Substance: BAMLANIVIMAB
     Dates: start: 20201218

REACTIONS (4)
  - Dizziness [None]
  - Vomiting [None]
  - Nausea [None]
  - Metastases to central nervous system [None]

NARRATIVE: CASE EVENT DATE: 20210105
